FAERS Safety Report 17493020 (Version 2)
Quarter: 2020Q2

REPORT INFORMATION
  Report Type: Spontaneous
  Country: US (occurrence: US)
  Receive Date: 20200304
  Receipt Date: 20200401
  Transmission Date: 20200713
  Serious: No
  Sender: FDA-Public Use
  Company Number: US-ASTRAZENECA-2020SE29640

PATIENT
  Sex: Female

DRUGS (3)
  1. ARMOR [Concomitant]
     Indication: THYROID DISORDER
  2. XANAX [Concomitant]
     Active Substance: ALPRAZOLAM
     Indication: ANXIETY
  3. BYDUREON BCISE [Suspect]
     Active Substance: EXENATIDE
     Indication: GLUCOSE TOLERANCE IMPAIRED
     Route: 065
     Dates: start: 201902

REACTIONS (6)
  - Incorrect dose administered by device [Recovered/Resolved]
  - Intentional device misuse [Unknown]
  - Device issue [Unknown]
  - Device leakage [Unknown]
  - Product use issue [Unknown]
  - Injection site haemorrhage [Recovered/Resolved]
